FAERS Safety Report 4816626-7 (Version None)
Quarter: 2005Q4

REPORT INFORMATION
  Report Type: 
  Country: None (occurrence: None)
  Receive Date: 20051031
  Receipt Date: 20051031
  Transmission Date: 20060501
  Serious: Yes (Other)
  Sender: FDA-Public Use
  Company Number: None

PATIENT
  Sex: Female
  Weight: 81.6475 kg

DRUGS (1)
  1. FENTANYL [Suspect]
     Dosage: 100 MCG Q 72 H

REACTIONS (2)
  - CONDITION AGGRAVATED [None]
  - DRUG EFFECT DECREASED [None]
